FAERS Safety Report 7757925-9 (Version None)
Quarter: 2011Q3

REPORT INFORMATION
  Report Type: 
  Country: None (occurrence: None)
  Receive Date: 20110919
  Receipt Date: 20110906
  Transmission Date: 20111222
  Serious: Yes (Hospitalization)
  Sender: FDA-Public Use
  Company Number: DE-BAUSCH-2011BL006064

PATIENT
  Age: 35 Month
  Sex: Male
  Weight: 14 kg

DRUGS (19)
  1. DICLOFENAC SODIUM [Suspect]
     Indication: ACCIDENTAL EXPOSURE
     Route: 048
     Dates: start: 20110716, end: 20110716
  2. BUSCOPAN PLUS [Suspect]
     Indication: ACCIDENTAL EXPOSURE
     Route: 048
     Dates: start: 20110716, end: 20110716
  3. PANTHENOL [Suspect]
     Indication: ACCIDENTAL EXPOSURE
     Route: 048
     Dates: start: 20110716, end: 20110716
  4. OLYNTH ^SASSE FRIEDRICH^ [Suspect]
     Indication: ACCIDENTAL EXPOSURE
     Route: 048
     Dates: start: 20110716, end: 20110716
  5. POTASSIUM PERMANGANATE [Suspect]
     Indication: ACCIDENTAL EXPOSURE
     Route: 061
     Dates: start: 20110716, end: 20110716
  6. HOMEOPATIC PREPARATION [Suspect]
     Indication: ACCIDENTAL EXPOSURE
     Route: 048
     Dates: start: 20110716, end: 20110716
  7. PROSPAN [Suspect]
     Indication: ACCIDENTAL EXPOSURE
     Route: 048
     Dates: start: 20110716, end: 20110716
  8. ACETAMINOPHEN [Suspect]
     Indication: ACCIDENTAL EXPOSURE
     Route: 048
     Dates: start: 20110716, end: 20110716
  9. BELLADONNA EXTRACT [Suspect]
     Indication: ACCIDENTAL EXPOSURE
     Route: 048
     Dates: start: 20110716, end: 20110716
  10. MCP ^HEXAL^ [Suspect]
     Indication: ACCIDENTAL EXPOSURE
     Route: 048
     Dates: start: 20110716, end: 20110716
  11. MOMETASONE FUROATE [Suspect]
     Indication: ACCIDENTAL EXPOSURE
     Route: 048
     Dates: start: 20110716, end: 20110716
  12. IBUPROFEN [Suspect]
     Indication: ACCIDENTAL EXPOSURE
     Route: 048
     Dates: start: 20110716, end: 20110716
  13. OMEPRAZOLE [Suspect]
     Indication: ACCIDENTAL EXPOSURE
     Route: 048
     Dates: start: 20110716, end: 20110716
  14. FLOXAL AUGENTROPFEN [Suspect]
     Indication: ACCIDENTAL EXPOSURE
     Route: 048
     Dates: start: 20110716, end: 20110716
  15. CORNEREGEL AUGENGEL [Suspect]
     Indication: ACCIDENTAL EXPOSURE
     Route: 048
     Dates: start: 20110716, end: 20110716
  16. MAALOXAN [Suspect]
     Indication: ACCIDENTAL EXPOSURE
     Route: 048
     Dates: start: 20110716, end: 20110716
  17. XYLOMETAZOLINE [Suspect]
     Indication: ACCIDENTAL EXPOSURE
     Route: 048
     Dates: start: 20110716, end: 20110716
  18. TIGER BALM [Suspect]
     Indication: ACCIDENTAL EXPOSURE
     Route: 061
     Dates: start: 20110716, end: 20110716
  19. NASENSPRAY E-RATIOPHARM [Suspect]
     Indication: ACCIDENTAL EXPOSURE
     Route: 048
     Dates: start: 20110716, end: 20110716

REACTIONS (3)
  - DIARRHOEA [None]
  - ACCIDENTAL DRUG INTAKE BY CHILD [None]
  - SKIN DISCOLOURATION [None]
